FAERS Safety Report 21888167 (Version 2)
Quarter: 2023Q1

REPORT INFORMATION
  Report Type: Spontaneous
  Country: IT (occurrence: IT)
  Receive Date: 20230120
  Receipt Date: 20230302
  Transmission Date: 20230418
  Serious: Yes (Hospitalization)
  Sender: FDA-Public Use
  Company Number: IT-ROCHE-3254421

PATIENT
  Age: 79 Year
  Sex: Female
  Weight: 70 kg

DRUGS (17)
  1. TRASTUZUMAB [Suspect]
     Active Substance: TRASTUZUMAB
     Indication: HER2 positive breast cancer
     Dosage: 6 MILLIGRAM/KILOGRAM, Q3WK
     Route: 065
     Dates: start: 20190530
  2. CAPECITABINE [Suspect]
     Active Substance: CAPECITABINE
     Indication: HER2 positive breast cancer
     Dosage: FREQUENCY:ONCEMOST RECENT DOSE PRIOR TO THE EVENT: 1/MAR/2021
     Route: 048
     Dates: start: 20200702, end: 20200723
  3. ADO-TRASTUZUMAB EMTANSINE [Suspect]
     Active Substance: ADO-TRASTUZUMAB EMTANSINE
     Indication: HER2 positive breast cancer
     Dosage: ROA:INTRAVENOUS (NOT OTHERWISE SPECIFIED) ,FREQUNCY:ONCEMOST RECENT DOSE PRIOR TO AE 31/MAR/2020
     Route: 065
     Dates: start: 20200310
  4. PERTUZUMAB [Suspect]
     Active Substance: PERTUZUMAB
     Indication: HER2 positive breast cancer
     Dosage: ROA:INTRAVENOUS (NOT OTHERWISE SPECIFIED), FREQUENCY:ONCEMOST RECENT DOSE PRIOR TO AE 14/FEB/2020
     Route: 065
     Dates: start: 20190530
  5. PACLITAXEL [Suspect]
     Active Substance: PACLITAXEL
     Indication: HER2 positive breast cancer
     Dosage: FREQUENCY:ONCE,ROA: INTRAVENOUS (NOT OTHERWISE SPECIFIED)MOST RECENT DOSE PRIOR TO AE 06/SEP/2019
     Route: 040
     Dates: start: 20190509
  6. LETROZOLE [Suspect]
     Active Substance: LETROZOLE
     Indication: HER2 positive breast cancer
     Dosage: MOST RECENT DOSE PRIOR TO AE 02/MAR/2020, FREQUENCY ONCE
     Route: 048
     Dates: start: 20191030
  7. TRASTUZUMAB DERUXTECAN [Suspect]
     Active Substance: TRASTUZUMAB DERUXTECAN
     Indication: HER2 positive breast cancer
     Dosage: 20 MILLIGRAM/ML, Q4WK
     Route: 065
     Dates: start: 20210819, end: 20220929
  8. LEVOTHYROXINE SODIUM [Concomitant]
     Active Substance: LEVOTHYROXINE SODIUM
     Dosage: ONGOING
  9. PREGABALIN [Concomitant]
     Active Substance: PREGABALIN
     Dosage: ONGOING
     Dates: start: 20210119
  10. NORMAST [Concomitant]
     Dosage: ONGOING
     Dates: start: 20210119
  11. LEVACECARNINE HYDROCHLORIDE [Concomitant]
     Active Substance: LEVACECARNINE HYDROCHLORIDE
     Dosage: ONGOING
     Dates: start: 20210119
  12. CITALOPRAM [Concomitant]
     Active Substance: CITALOPRAM HYDROBROMIDE
     Dosage: ONGOING
     Dates: start: 20200715
  13. LOPERAMIDE HYDROCHLORIDE [Concomitant]
     Active Substance: LOPERAMIDE HYDROCHLORIDE
     Dosage: ONGOING
  14. ACETAMINOPHEN\OXYCODONE HYDROCHLORIDE [Concomitant]
     Active Substance: ACETAMINOPHEN\OXYCODONE HYDROCHLORIDE
     Dosage: ONGOING
     Dates: start: 20201022
  15. LAEVOLAC EPS [Concomitant]
     Route: 065
  16. TAZAROTENE [Concomitant]
     Active Substance: TAZAROTENE
     Route: 065
  17. NEURONTIN [Concomitant]
     Active Substance: GABAPENTIN
     Route: 065

REACTIONS (3)
  - Anal haemorrhage [Recovered/Resolved]
  - Anal haemorrhage [Recovered/Resolved]
  - Off label use [Unknown]

NARRATIVE: CASE EVENT DATE: 20221028
